FAERS Safety Report 10269691 (Version 1)
Quarter: 2014Q2

REPORT INFORMATION
  Report Type: Spontaneous
  Country: JP (occurrence: None)
  Receive Date: 20140625
  Receipt Date: 20140625
  Transmission Date: 20141212
  Serious: Yes (Other)
  Sender: FDA-Public Use
  Company Number: 2014-19780

PATIENT
  Age: 66 Year
  Sex: Female
  Weight: 42 kg

DRUGS (10)
  1. EYLEA (AFLIBERCEPT) INJECTION)AFLIBERCEPT) [Suspect]
     Indication: RETINAL VEIN OCCLUSION
     Route: 031
     Dates: start: 20140403, end: 20140403
  2. BRONUCK (BROMFENAC SODIUM) [Concomitant]
  3. AZOPT (BRINZOLAMIDE) (1 PERCENT) (BRINZOLAMIDE) [Concomitant]
  4. TIMOPTOL (TIMOLOL MALEATE) [Concomitant]
  5. ALIVIAPRES (DORZOLAMIDE HYDROCHLORIDE, TIMOLOL MALEATE) [Concomitant]
  6. BRIMONIDINE TARTRATE (BRIMONIDINE TARTRATE) [Concomitant]
  7. CRAVIT (LEVOFLOXACIN) [Concomitant]
  8. BERBESOLONE F SATO (BETAMETHASONE SODIUM PHOSPHATE, NEOMYCIN SULFATE) [Concomitant]
  9. NEVANAC (NEPAFENAC) [Concomitant]
  10. GATIFLO (GATIFLOXACIN) [Concomitant]

REACTIONS (1)
  - Brain stem haemorrhage [None]
